FAERS Safety Report 7829319-9 (Version None)
Quarter: 2011Q4

REPORT INFORMATION
  Report Type: 
  Country: None (occurrence: None)
  Receive Date: 20111020
  Receipt Date: 20111011
  Transmission Date: 20120403
  Serious: Yes (Other)
  Sender: FDA-Public Use
  Company Number: JP-ASTRAZENECA-2011SE61724

PATIENT
  Age: 27 Year
  Sex: Female

DRUGS (6)
  1. NEXIUM [Suspect]
     Indication: GASTROOESOPHAGEAL REFLUX DISEASE
     Route: 048
     Dates: start: 20111008, end: 20111008
  2. ASMANEX TWISTHALER [Concomitant]
     Route: 055
  3. TERSIGAN [Concomitant]
     Route: 055
  4. PRAVASTATIN SODIUM [Concomitant]
     Route: 065
  5. UNKNOWNDRUG [Concomitant]
     Dosage: DOSE UNKNOWN
     Route: 065
  6. PRANLUKAST [Concomitant]
     Route: 048

REACTIONS (6)
  - INSOMNIA [None]
  - CHOKING SENSATION [None]
  - SENSE OF OPPRESSION [None]
  - RESTLESSNESS [None]
  - ABDOMINAL DISCOMFORT [None]
  - EMOTIONAL DISORDER [None]
